FAERS Safety Report 9954685 (Version 1)
Quarter: 2014Q1

REPORT INFORMATION
  Report Type: Report from Study
  Country: US (occurrence: US)
  Receive Date: 20140304
  Receipt Date: 20140304
  Transmission Date: 20141002
  Serious: No
  Sender: FDA-Public Use
  Company Number: US-ABBVIE-13P-163-1083463-00

PATIENT
  Age: 47 Year
  Sex: Female

DRUGS (8)
  1. HUMIRA [Suspect]
     Indication: PSORIASIS
     Dates: start: 20130422, end: 20130422
  2. HUMIRA [Suspect]
     Dates: start: 20130429
  3. CYCLO [Concomitant]
     Indication: MYDRIASIS
  4. AZOPT [Concomitant]
     Indication: SENSATION OF PRESSURE
  5. AZOPT [Concomitant]
     Indication: GLAUCOMA
  6. VALACICLOVIR [Concomitant]
     Indication: PSORIASIS
  7. ACETAZOLAMIDE [Concomitant]
     Indication: INTRAOCULAR PRESSURE TEST
  8. METHAZOLAMIDE [Concomitant]
     Indication: INTRAOCULAR PRESSURE TEST

REACTIONS (5)
  - Injection site pain [Recovered/Resolved]
  - Migraine [Recovered/Resolved]
  - Musculoskeletal pain [Recovered/Resolved]
  - Neck pain [Recovered/Resolved]
  - Injection site paraesthesia [Recovered/Resolved]
